FAERS Safety Report 8949566 (Version 1)
Quarter: 2012Q4

REPORT INFORMATION
  Report Type: 
  Country: US (occurrence: US)
  Receive Date: 20121206
  Receipt Date: 20121206
  Transmission Date: 20130627
  Serious: Yes (Other)
  Sender: FDA-Public Use
  Company Number: US-ELI_LILLY_AND_COMPANY-US201211008451

PATIENT
  Sex: Female

DRUGS (1)
  1. EVISTA [Suspect]
     Indication: OSTEOPOROSIS
     Dosage: 60 mg, qd
     Route: 048
     Dates: start: 2001

REACTIONS (4)
  - Progressive supranuclear palsy [Unknown]
  - Fracture [Unknown]
  - Fall [Unknown]
  - Dysphagia [Unknown]
